FAERS Safety Report 8294142-0 (Version None)
Quarter: 2012Q2

REPORT INFORMATION
  Report Type: 
  Country: None (occurrence: None)
  Receive Date: 20120418
  Receipt Date: 20120411
  Transmission Date: 20120825
  Serious: Yes (Hospitalization)
  Sender: FDA-Public Use
  Company Number: PHHY2012CA023617

PATIENT
  Sex: Female

DRUGS (2)
  1. SANDOSTATIN [Suspect]
     Indication: VIPOMA
     Route: 058
     Dates: start: 20111201
  2. SANDOSTATIN LAR [Suspect]
     Indication: VIPOMA
     Dosage: 30 MG, QMO
     Route: 030
     Dates: start: 20111201

REACTIONS (3)
  - ELECTROLYTE IMBALANCE [None]
  - FATIGUE [None]
  - DIARRHOEA [None]
